FAERS Safety Report 10969776 (Version 1)
Quarter: 2015Q1

REPORT INFORMATION
  Report Type: Report from Study
  Country: FR (occurrence: FR)
  Receive Date: 20150331
  Receipt Date: 20150331
  Transmission Date: 20150721
  Serious: Yes (Hospitalization)
  Sender: FDA-Public Use
  Company Number: FR-JNJFOC-20150314468

PATIENT
  Age: 70 Year
  Sex: Female
  Weight: 35 kg

DRUGS (5)
  1. INEXIUM [Concomitant]
     Active Substance: ESOMEPRAZOLE
     Route: 065
     Dates: start: 20150217
  2. DEROXAT [Concomitant]
     Active Substance: PAROXETINE HYDROCHLORIDE
     Indication: DEPRESSION
     Dosage: 20MG/10ML
     Route: 065
     Dates: start: 2014
  3. SOVALDI [Suspect]
     Active Substance: SOFOSBUVIR
     Indication: HEPATITIS C
     Route: 065
     Dates: start: 20140915, end: 20141207
  4. LEXOMIL [Concomitant]
     Active Substance: BROMAZEPAM
     Indication: ANXIETY
     Route: 065
     Dates: start: 1995
  5. OLYSIO [Suspect]
     Active Substance: SIMEPREVIR
     Indication: HEPATITIS C
     Route: 048
     Dates: start: 20140915, end: 20141207

REACTIONS (8)
  - Rectal haemorrhage [Recovered/Resolved]
  - Haemorrhoids [Unknown]
  - Leukopenia [Unknown]
  - Rash [Unknown]
  - Weight decreased [Unknown]
  - Abdominal pain [Recovered/Resolved]
  - Neutropenia [Unknown]
  - Colitis [Unknown]

NARRATIVE: CASE EVENT DATE: 20150211
